FAERS Safety Report 8797218 (Version 3)
Quarter: 2012Q4

REPORT INFORMATION
  Report Type: 
  Country: US (occurrence: US)
  Receive Date: 20120920
  Receipt Date: 20121128
  Transmission Date: 20130627
  Serious: Yes (Life-Threatening, Hospitalization)
  Sender: FDA-Public Use
  Company Number: US-JNJFOC-20120906181

PATIENT
  Age: 69 Year
  Sex: Female
  Weight: 86.18 kg

DRUGS (14)
  1. XARELTO [Suspect]
     Indication: THROMBOSIS PROPHYLAXIS
     Route: 048
     Dates: start: 20120726, end: 20120731
  2. XARELTO [Suspect]
     Indication: KNEE ARTHROPLASTY
     Route: 048
     Dates: start: 20120726, end: 20120731
  3. NOVOLOG [Concomitant]
     Indication: BLOOD GLUCOSE ABNORMAL
     Route: 058
  4. LEVEMIR [Concomitant]
     Indication: BLOOD GLUCOSE ABNORMAL
     Route: 058
  5. BENAZEPRIL HCL [Concomitant]
     Route: 048
  6. VENTOLIN [Concomitant]
     Route: 055
  7. NORVASC [Concomitant]
     Route: 048
  8. ZOCOR [Concomitant]
     Route: 048
  9. NEURONTIN [Concomitant]
     Route: 048
  10. CARVEDILOL [Concomitant]
     Route: 048
  11. ALBUTEROL/IPRATROPIUM [Concomitant]
     Route: 055
  12. XANAX [Concomitant]
     Route: 048
  13. ADVAIR 100/50 [Concomitant]
     Route: 055
  14. PERCOCET [Concomitant]
     Indication: PAIN
     Dosage: 5-325 mg
     Route: 048

REACTIONS (7)
  - Gastrointestinal haemorrhage [Recovered/Resolved]
  - Peptic ulcer [Unknown]
  - Mental status changes [Unknown]
  - Confusional state [Unknown]
  - Renal impairment [Unknown]
  - Chronic obstructive pulmonary disease [Unknown]
  - Hypertension [Unknown]
